FAERS Safety Report 7993124-3 (Version None)
Quarter: 2011Q4

REPORT INFORMATION
  Report Type: 
  Country: None (occurrence: None)
  Receive Date: 20111219
  Receipt Date: 20110301
  Transmission Date: 20120403
  Serious: No
  Sender: FDA-Public Use
  Company Number: US-ASTRAZENECA-2011SE11182

PATIENT
  Sex: Female

DRUGS (3)
  1. ALPHAGAN [Concomitant]
  2. SIMVASTATIN [Concomitant]
  3. CRESTOR [Suspect]
     Route: 048

REACTIONS (6)
  - PARAESTHESIA [None]
  - VISION BLURRED [None]
  - SOMNOLENCE [None]
  - LETHARGY [None]
  - HYPOAESTHESIA [None]
  - DYSSOMNIA [None]
